FAERS Safety Report 4869461-8 (Version None)
Quarter: 2005Q4

REPORT INFORMATION
  Report Type: 
  Country: None (occurrence: None)
  Receive Date: 20051230
  Receipt Date: 20050128
  Transmission Date: 20060501
  Serious: Yes (Life-Threatening, Hospitalization, Disabling)
  Sender: FDA-Public Use
  Company Number: DE-MERCK-0501DEU00284

PATIENT
  Age: 44 Year
  Sex: Male
  Weight: 72 kg

DRUGS (10)
  1. VIOXX [Suspect]
     Indication: INTERVERTEBRAL DISC DISORDER
     Route: 048
     Dates: start: 19990901, end: 20030201
  2. VIOXX [Suspect]
     Indication: PAIN
     Route: 048
     Dates: start: 19990901, end: 20030201
  3. PIROXICAM BETADEX [Concomitant]
     Route: 065
  4. TILIDINE HYDROCHLORIDE [Concomitant]
     Route: 065
  5. TRAMADOL HYDROCHLORIDE [Concomitant]
     Route: 048
     Dates: start: 20021201
  6. CHOLECALCIFEROL [Concomitant]
     Route: 048
     Dates: start: 20000101
  7. AMLODIPINE BESYLATE [Concomitant]
     Route: 048
     Dates: start: 20021201
  8. ENALAPRIL MALEATE [Concomitant]
     Route: 048
     Dates: start: 20041201
  9. BISOPROLOL FUMARATE [Concomitant]
     Route: 048
     Dates: start: 20021201
  10. PIMECROLIMUS [Concomitant]
     Route: 061

REACTIONS (8)
  - DIARRHOEA [None]
  - FLATULENCE [None]
  - HYPERTENSIVE CRISIS [None]
  - IRITIS [None]
  - NEPHROSCLEROSIS [None]
  - RENAL FAILURE ACUTE [None]
  - SLEEP DISORDER [None]
  - VISUAL FIELD DEFECT [None]
